FAERS Safety Report 5651454-4 (Version None)
Quarter: 2008Q1

REPORT INFORMATION
  Report Type: 
  Country: None (occurrence: None)
  Receive Date: 20080305
  Receipt Date: 20080225
  Transmission Date: 20080703
  Serious: Yes (Life-Threatening, Other)
  Sender: FDA-Public Use
  Company Number: FR-ELI_LILLY_AND_COMPANY-FR200802005442

PATIENT
  Weight: 3200 kg

DRUGS (3)
  1. PROZAC [Suspect]
     Route: 064
     Dates: end: 20080114
  2. ATARAX [Concomitant]
     Route: 064
     Dates: end: 20080114
  3. RIVOTRIL [Concomitant]
     Route: 064
     Dates: end: 20080114

REACTIONS (4)
  - DRUG EXPOSURE DURING PREGNANCY [None]
  - HYPERTONIA NEONATAL [None]
  - NEONATAL RESPIRATORY DISTRESS SYNDROME [None]
  - TREMOR NEONATAL [None]
